FAERS Safety Report 15774932 (Version 4)
Quarter: 2021Q2

REPORT INFORMATION
  Report Type: Spontaneous
  Country: JP (occurrence: JP)
  Receive Date: 20181230
  Receipt Date: 20210611
  Transmission Date: 20210716
  Serious: Yes (Hospitalization)
  Sender: FDA-Public Use
  Company Number: JP-UCBSA-2018045937

PATIENT
  Age: 22 Year
  Sex: Female
  Weight: 51 kg

DRUGS (20)
  1. VIMPAT [Suspect]
     Active Substance: LACOSAMIDE
     Dosage: 150 MILLIGRAMSPER DAY
  2. TOPINA [Concomitant]
     Active Substance: TOPIRAMATE
     Indication: LENNOX-GASTAUT SYNDROME
     Dosage: UNK
     Route: 048
     Dates: start: 20180607, end: 20180801
  3. CLOBAZAM. [Concomitant]
     Active Substance: CLOBAZAM
     Indication: LENNOX-GASTAUT SYNDROME
     Dosage: UNK
  4. NELBON [Concomitant]
     Active Substance: NITRAZEPAM
     Dosage: 5 G, ONCE DAILY (QD)
     Route: 048
     Dates: start: 20180607
  5. VIMPAT [Suspect]
     Active Substance: LACOSAMIDE
     Indication: LENNOX-GASTAUT SYNDROME
     Dosage: UNK
     Route: 048
     Dates: start: 20180327, end: 20180403
  6. VIMPAT [Suspect]
     Active Substance: LACOSAMIDE
     Dosage: UNK
     Route: 048
     Dates: start: 20180826, end: 20180906
  7. TOPINA [Concomitant]
     Active Substance: TOPIRAMATE
     Indication: EPILEPSY
     Dosage: UNK
     Route: 048
     Dates: end: 20180606
  8. VIMPAT [Suspect]
     Active Substance: LACOSAMIDE
     Indication: EPILEPSY
     Dosage: 50 MG, 2X/DAY (BID)
     Route: 048
     Dates: start: 20180324, end: 20180326
  9. VIMPAT [Suspect]
     Active Substance: LACOSAMIDE
     Indication: OFF LABEL USE
     Dosage: 100 MG, 2X/DAY (BID)
     Route: 048
     Dates: start: 20180404, end: 20180502
  10. VIMPAT [Suspect]
     Active Substance: LACOSAMIDE
     Dosage: 100 MG, 2X/DAY (BID)
     Route: 048
     Dates: start: 20180907, end: 20180919
  11. DEPAKENE [VALPROATE SODIUM] [Concomitant]
     Active Substance: VALPROATE SODIUM
     Indication: LENNOX-GASTAUT SYNDROME
  12. DEPAKENE [VALPROATE SODIUM] [Concomitant]
     Active Substance: VALPROATE SODIUM
     Indication: EPILEPSY
     Dosage: 100 MG, 2X/DAY (BID)
     Route: 048
     Dates: end: 20180811
  13. LAMICTAL [Concomitant]
     Active Substance: LAMOTRIGINE
     Indication: LENNOX-GASTAUT SYNDROME
     Dosage: 100 MG, 2X/DAY (BID)
     Route: 048
  14. NELBON [Concomitant]
     Active Substance: NITRAZEPAM
     Indication: LENNOX-GASTAUT SYNDROME
     Dosage: 3 G, ONCE DAILY (QD)
     Route: 048
  15. CLONAZEPAM. [Concomitant]
     Active Substance: CLONAZEPAM
     Indication: EPILEPSY
     Dosage: UNK
  16. VIMPAT [Suspect]
     Active Substance: LACOSAMIDE
     Dosage: 150 MG, 2X/DAY (BID)
     Route: 048
     Dates: start: 20180503, end: 20180825
  17. VIMPAT [Suspect]
     Active Substance: LACOSAMIDE
     Dosage: UNK
     Route: 048
     Dates: start: 20180920
  18. SELENICA?R [Concomitant]
     Active Substance: VALPROATE SODIUM
     Indication: LENNOX-GASTAUT SYNDROME
     Dosage: 400 MG, 2X/DAY (BID)
     Route: 048
  19. ZONISAMIDE. [Concomitant]
     Active Substance: ZONISAMIDE
     Indication: LENNOX-GASTAUT SYNDROME
     Dosage: UNK
  20. TOPINA [Concomitant]
     Active Substance: TOPIRAMATE
     Dosage: 100 MG, 2X/DAY (BID)
     Route: 048
     Dates: start: 20180802, end: 20180811

REACTIONS (7)
  - Pneumonia aspiration [Recovered/Resolved]
  - Vomiting [Unknown]
  - Psychotic disorder [Recovered/Resolved]
  - Decreased appetite [Recovered/Resolved]
  - Off label use [Unknown]
  - Weight decreased [Unknown]
  - Nausea [Unknown]

NARRATIVE: CASE EVENT DATE: 20180324
